FAERS Safety Report 17793297 (Version 3)
Quarter: 2020Q3

REPORT INFORMATION
  Report Type: Spontaneous
  Country: US (occurrence: US)
  Receive Date: 20200515
  Receipt Date: 20200924
  Transmission Date: 20201102
  Serious: No
  Sender: FDA-Public Use
  Company Number: US-BEH-2020117118

PATIENT
  Sex: Male

DRUGS (2)
  1. HIZENTRA [Suspect]
     Active Substance: HUMAN IMMUNOGLOBULIN G
     Indication: IMMUNODEFICIENCY COMMON VARIABLE
     Dosage: 15 GRAM, QOW
     Route: 058
     Dates: start: 20200220
  2. HIZENTRA [Suspect]
     Active Substance: HUMAN IMMUNOGLOBULIN G
     Dosage: UNK
     Route: 058

REACTIONS (6)
  - Joint swelling [Unknown]
  - Peripheral swelling [Unknown]
  - Infusion site extravasation [Unknown]
  - Pain [Unknown]
  - Paraesthesia [Unknown]
  - Arthralgia [Unknown]
